FAERS Safety Report 9682027 (Version 2)
Quarter: 2013Q4

REPORT INFORMATION
  Report Type: Report from Study
  Country: PL (occurrence: PL)
  Receive Date: 20131111
  Receipt Date: 20131118
  Transmission Date: 20140711
  Serious: Yes (Other)
  Sender: FDA-Public Use
  Company Number: PHHY2013PL124149

PATIENT
  Age: 66 Year
  Sex: Male

DRUGS (8)
  1. TASIGNA [Suspect]
     Dosage: 800 MG, DAILY
     Dates: start: 20110210
  2. PIRAMIL [Concomitant]
     Indication: HYPERTENSION
     Dosage: 5 MG, PER DAY
     Route: 048
  3. FUROSEMID ^DAK^ [Concomitant]
     Indication: HYPERTENSION
     Dosage: 40 MG, PER DAY
     Route: 048
  4. ACENOCOUMAROL [Concomitant]
  5. BEMECOR [Concomitant]
  6. ATORIS [Concomitant]
     Dosage: 20 MG, QD
  7. ANESTELOC [Concomitant]
     Dosage: 20 MG, QD
  8. MILURIT [Concomitant]

REACTIONS (7)
  - Mitral valve disease [Unknown]
  - Cardiac failure [Unknown]
  - Pruritus [Recovering/Resolving]
  - Rash [Unknown]
  - Skin lesion [Unknown]
  - Asthenia [Unknown]
  - Hypertension [Unknown]
